FAERS Safety Report 7023903-0 (Version None)
Quarter: 2010Q3

REPORT INFORMATION
  Report Type: 
  Country: None (occurrence: None)
  Receive Date: 20100916
  Receipt Date: 20090924
  Transmission Date: 20110219
  Serious: Yes (Hospitalization)
  Sender: FDA-Public Use
  Company Number: 109348 (0)

PATIENT
  Sex: Male

DRUGS (1)
  1. INNOHEP [Suspect]
     Indication: THROMBOSIS PROPHYLAXIS
     Dosage: 4500 IU (4500 IU,1 IN 1 D),SUBCUTANEOUS; 47 D
     Route: 058

REACTIONS (1)
  - INTRACRANIAL TUMOUR HAEMORRHAGE [None]
